FAERS Safety Report 16057995 (Version 6)
Quarter: 2019Q4

REPORT INFORMATION
  Report Type: Spontaneous
  Country: US (occurrence: US)
  Receive Date: 20190311
  Receipt Date: 20191018
  Transmission Date: 20200122
  Serious: Yes (Congenital Anomaly, Other)
  Sender: FDA-Public Use
  Company Number: PHEH2019US010630

PATIENT
  Sex: Male

DRUGS (2)
  1. ZOFRAN [Suspect]
     Active Substance: ONDANSETRON HYDROCHLORIDE
     Indication: FOETAL EXPOSURE DURING PREGNANCY
     Dosage: MOTHER DOSE: 8 MG, UNK
     Route: 064
  2. ZOFRAN [Suspect]
     Active Substance: ONDANSETRON HYDROCHLORIDE
     Indication: FOETAL EXPOSURE DURING PREGNANCY
     Route: 064

REACTIONS (39)
  - Right ventricular hypertrophy [Unknown]
  - Otitis media [Unknown]
  - Sleep disorder [Unknown]
  - Nasal congestion [Unknown]
  - Left-to-right cardiac shunt [Unknown]
  - Nasal flaring [Unknown]
  - Rhinorrhoea [Unknown]
  - Attention deficit/hyperactivity disorder [Unknown]
  - Cardiac septal defect [Unknown]
  - Right-to-left cardiac shunt [Unknown]
  - Haemangioma [Unknown]
  - Jaundice neonatal [Unknown]
  - Gastritis [Unknown]
  - Conjunctivitis [Unknown]
  - Ventricular septal defect [Unknown]
  - Hypoglycaemia neonatal [Recovered/Resolved]
  - Vomiting [Unknown]
  - Decreased appetite [Unknown]
  - Myopia [Unknown]
  - Snoring [Unknown]
  - Scarlet fever [Unknown]
  - Developmental delay [Unknown]
  - Sleep apnoea syndrome [Unknown]
  - Atrial septal defect [Unknown]
  - Neonatal respiratory distress [Unknown]
  - Foetal exposure during pregnancy [Unknown]
  - Upper respiratory tract infection [Unknown]
  - Rash [Unknown]
  - Cough [Unknown]
  - Dermatitis contact [Unknown]
  - Lactose intolerance [Unknown]
  - Bronchiolitis [Unknown]
  - Gastrooesophageal reflux disease [Unknown]
  - Dyspnoea [Unknown]
  - Fatigue [Unknown]
  - Grunting [Unknown]
  - Pylorospasm [Unknown]
  - Abdominal pain upper [Unknown]
  - Cardiac murmur [Unknown]
